FAERS Safety Report 9752898 (Version 1)
Quarter: 2013Q4

REPORT INFORMATION
  Report Type: Spontaneous
  Country: US (occurrence: US)
  Receive Date: 20131213
  Receipt Date: 20131213
  Transmission Date: 20140711
  Serious: No
  Sender: FDA-Public Use
  Company Number: US-GLAXOSMITHKLINE-A1017299A

PATIENT
  Age: 73 Year
  Sex: Male

DRUGS (3)
  1. ARZERRA [Suspect]
     Indication: NON-HODGKIN^S LYMPHOMA
     Dates: start: 201211, end: 20121119
  2. TRENTAL [Concomitant]
  3. VITAMINS [Concomitant]

REACTIONS (1)
  - Visual impairment [Recovered/Resolved]
